FAERS Safety Report 4885547-6 (Version None)
Quarter: 2006Q1

REPORT INFORMATION
  Report Type: 
  Country: None (occurrence: None)
  Receive Date: 20060119
  Receipt Date: 20050406
  Transmission Date: 20060701
  Serious: Yes (Hospitalization)
  Sender: FDA-Public Use
  Company Number: US-MERCK-0504USA01016

PATIENT
  Age: 56 Year
  Sex: Female
  Weight: 70 kg

DRUGS (14)
  1. VIOXX [Suspect]
     Indication: INFLAMMATION
     Route: 048
     Dates: start: 19991101, end: 20040521
  2. VIOXX [Suspect]
     Route: 048
     Dates: start: 19991101, end: 20040521
  3. PROZAC [Concomitant]
     Route: 065
  4. DARVOCET-N 50 [Concomitant]
     Route: 065
  5. SOMA [Concomitant]
     Route: 065
  6. XANAX [Concomitant]
     Route: 065
  7. KETOPROFEN [Concomitant]
     Route: 065
  8. ULTRAM [Concomitant]
     Route: 065
  9. DURADRIN [Concomitant]
     Route: 065
  10. THERAGESIC [Concomitant]
     Route: 065
  11. ZOLOFT [Concomitant]
     Route: 065
  12. ALBUTEROL [Concomitant]
     Route: 065
  13. AMBIEN [Concomitant]
     Route: 065
  14. NITROQUICK [Concomitant]
     Route: 065

REACTIONS (16)
  - ACUTE MYOCARDIAL INFARCTION [None]
  - ANGINA PECTORIS [None]
  - ARTERIOSCLEROSIS CORONARY ARTERY [None]
  - CARDIAC DISORDER [None]
  - CARDIAC FAILURE CONGESTIVE [None]
  - CHEST PAIN [None]
  - CORONARY ARTERY DISEASE [None]
  - DEPRESSION [None]
  - HEADACHE [None]
  - ISCHAEMIC CARDIOMYOPATHY [None]
  - LOBAR PNEUMONIA [None]
  - LUNG INFILTRATION [None]
  - MITRAL VALVE INCOMPETENCE [None]
  - OBSTRUCTIVE CHRONIC BRONCHITIS WITH ACUTE EXACERBATION [None]
  - SHOCK [None]
  - TRICUSPID VALVE INCOMPETENCE [None]
